FAERS Safety Report 10684660 (Version 1)
Quarter: 2014Q4

REPORT INFORMATION
  Report Type: Spontaneous
  Country: IT (occurrence: IT)
  Receive Date: 20141231
  Receipt Date: 20141231
  Transmission Date: 20150529
  Serious: Yes (Hospitalization)
  Sender: FDA-Public Use
  Company Number: IT-ASTRAZENECA-2014SE98870

PATIENT
  Age: 10901 Day
  Sex: Female

DRUGS (4)
  1. XANAX [Suspect]
     Active Substance: ALPRAZOLAM
     Indication: DRUG ABUSE
     Dosage: 10 MG DAILY DOSE
     Route: 048
     Dates: start: 20141125, end: 20141125
  2. PASADEN [Suspect]
     Active Substance: ETIZOLAM
     Indication: DRUG ABUSE
     Dosage: 1 MG COATED TABLETS, 3 MG DAILY DOSE
     Route: 048
     Dates: start: 20141125, end: 20141125
  3. EN [Suspect]
     Active Substance: DELORAZEPAM
     Indication: DRUG ABUSE
     Dosage: 20 MG DAILY DOSE
     Route: 048
     Dates: start: 20141125, end: 20141125
  4. SEROQUEL [Suspect]
     Active Substance: QUETIAPINE FUMARATE
     Indication: DRUG ABUSE
     Dosage: 25 MG, 150MG DAILY DOSE
     Route: 048
     Dates: start: 20141125, end: 20141125

REACTIONS (2)
  - Sopor [Recovered/Resolved]
  - Drug abuse [Recovered/Resolved]

NARRATIVE: CASE EVENT DATE: 20141125
